FAERS Safety Report 5819061-8 (Version None)
Quarter: 2008Q3

REPORT INFORMATION
  Report Type: 
  Country: None (occurrence: None)
  Receive Date: 20080723
  Receipt Date: 20070710
  Transmission Date: 20090109
  Serious: No
  Sender: FDA-Public Use
  Company Number: US-BAYER-US-2007-025759

PATIENT
  Age: 50 Year
  Sex: Female
  Weight: 72 kg

DRUGS (5)
  1. MAGNEVIST [Suspect]
     Indication: NUCLEAR MAGNETIC RESONANCE IMAGING BRAIN
     Dosage: TOTAL DAILY DOSE: 18 ML  UNIT DOSE: 20 ML
     Route: 042
     Dates: start: 20070710, end: 20070710
  2. PREDNISONE TAB [Concomitant]
     Dates: start: 20070709, end: 20070709
  3. PREDNISONE TAB [Concomitant]
     Dates: start: 20070709, end: 20070709
  4. PREDNISONE TAB [Concomitant]
     Dates: start: 20070710, end: 20070710
  5. BENADRYL ^PFIZER WARNER-LAMBERT^ [Concomitant]
     Dates: start: 20070710, end: 20070710

REACTIONS (2)
  - PRURITUS [None]
  - URTICARIA [None]
